FAERS Safety Report 6615600-8 (Version None)
Quarter: 2010Q1

REPORT INFORMATION
  Report Type: 
  Country: None (occurrence: None)
  Receive Date: 20100305
  Receipt Date: 20100204
  Transmission Date: 20100710
  Serious: No
  Sender: FDA-Public Use
  Company Number: US-BAYER-201013159NA

PATIENT
  Sex: Female

DRUGS (3)
  1. ULTRAVIST 300 [Suspect]
     Indication: DRUG USE FOR UNKNOWN INDICATION
     Dosage: AS USED: 80 ML  UNIT DOSE: 500 ML
     Dates: start: 20100201, end: 20100201
  2. PREDNISONE [Concomitant]
     Indication: PREMEDICATION
     Dates: start: 20100201, end: 20100201
  3. BENADRYL [Concomitant]
     Indication: PREMEDICATION
     Dates: start: 20100201, end: 20100201

REACTIONS (3)
  - HYPOAESTHESIA ORAL [None]
  - PRURITUS [None]
  - URTICARIA [None]
